FAERS Safety Report 11054954 (Version 2)
Quarter: 2015Q2

REPORT INFORMATION
  Report Type: Spontaneous
  Country: IT (occurrence: IT)
  Receive Date: 20150422
  Receipt Date: 20150424
  Transmission Date: 20150821
  Serious: Yes (Hospitalization)
  Sender: FDA-Public Use
  Company Number: IT-PFIZER INC-2015137397

PATIENT
  Age: 79 Year
  Sex: Male

DRUGS (6)
  1. CORDARONE [Suspect]
     Active Substance: AMIODARONE HYDROCHLORIDE
     Dosage: 200 MG, DAILY
     Route: 065
     Dates: start: 20150320, end: 20150324
  2. ZYLORIC [Interacting]
     Active Substance: ALLOPURINOL
     Dosage: 300 MG, DAILY
     Route: 065
     Dates: start: 20150320, end: 20150324
  3. CARDICOR [Concomitant]
     Active Substance: BISOPROLOL
     Dosage: UNK
     Dates: start: 20150320, end: 20150324
  4. LASITONE [Concomitant]
     Active Substance: FUROSEMIDE\SPIRONOLACTONE
     Dosage: UNK
  5. COUMADIN [Interacting]
     Active Substance: WARFARIN SODIUM
     Dosage: 1 UNIT (S), DAILY
     Route: 065
     Dates: start: 20150320, end: 20150324
  6. FUROSEMIDE. [Interacting]
     Active Substance: FUROSEMIDE
     Dosage: 25 MG, DAILY
     Route: 065
     Dates: start: 20150320, end: 20150324

REACTIONS (3)
  - International normalised ratio increased [Recovered/Resolved]
  - Drug interaction [Recovered/Resolved]
  - Haematochezia [Recovered/Resolved]

NARRATIVE: CASE EVENT DATE: 20150324
